FAERS Safety Report 24751976 (Version 1)
Quarter: 2024Q4

REPORT INFORMATION
  Report Type: Spontaneous
  Country: US (occurrence: US)
  Receive Date: 20241219
  Receipt Date: 20241219
  Transmission Date: 20250115
  Serious: No
  Sender: PACIRA
  Company Number: US-ORG100016242-2024000621

PATIENT

DRUGS (1)
  1. EXPAREL [Suspect]
     Active Substance: BUPIVACAINE
     Indication: Nerve block
     Route: 065

REACTIONS (1)
  - Product administered at inappropriate site [Unknown]
